FAERS Safety Report 4365091-5 (Version None)
Quarter: 2004Q2

REPORT INFORMATION
  Report Type: 
  Country: None (occurrence: None)
  Receive Date: 20040520
  Receipt Date: 20040505
  Transmission Date: 20050107
  Serious: Yes (Death)
  Sender: FDA-Public Use
  Company Number: 6008694

PATIENT
  Age: 79 Year
  Sex: Female

DRUGS (4)
  1. LEVOTHYROXINE SODIUM [Suspect]
     Indication: HYPOTHYROIDISM
     Dosage: 75 MCG (75 MCG, 1 IN 1 D); ORAL
     Route: 048
     Dates: start: 20000601
  2. LEXOMIL (6 MICROGRAM, TABLETS)( BROMAZEPAM) [Suspect]
     Indication: ANXIETY
     Dosage: 0,25 DOSAGE FORM (0,25 DOSAGE FORMS, 1 IN 1 D);ORAL
     Route: 048
     Dates: start: 19990601
  3. IXEL (CAPSULES) (MILINACIPRAN) [Suspect]
     Indication: DEPRESSION
     Dosage: 25 MG (25 MG, 1 IN 1 D); ORAL
     Route: 048
     Dates: start: 19990601
  4. ZYPREXA [Suspect]
     Indication: PSYCHOTIC DISORDER
     Dosage: 25 MG (25 MG, 1 IN 1 D); ORAL
     Route: 048
     Dates: start: 20030602

REACTIONS (4)
  - CHOKING [None]
  - CYANOSIS [None]
  - RESPIRATORY ARREST [None]
  - SUDDEN DEATH [None]
